FAERS Safety Report 14184709 (Version 1)
Quarter: 2017Q4

REPORT INFORMATION
  Report Type: Report from Study
  Country: US (occurrence: US)
  Receive Date: 20171114
  Receipt Date: 20171114
  Transmission Date: 20180321
  Serious: Yes (Hospitalization)
  Sender: FDA-Public Use
  Company Number: US-ASTRAZENECA-2017SF14147

PATIENT
  Age: 27472 Day
  Sex: Male
  Weight: 82.6 kg

DRUGS (14)
  1. ALLOPURINOL. [Concomitant]
     Active Substance: ALLOPURINOL
  2. NITROGLYCERIN. [Concomitant]
     Active Substance: NITROGLYCERIN
     Dosage: 0.4MG AS REQUIRED
  3. COQ10 [Concomitant]
     Active Substance: UBIDECARENONE
     Indication: MUSCLE SPASMS
     Dosage: 300 MG
  4. BRILINTA [Suspect]
     Active Substance: TICAGRELOR
     Indication: STENT PLACEMENT
     Route: 048
     Dates: start: 20171104
  5. PLAVIX [Concomitant]
     Active Substance: CLOPIDOGREL BISULFATE
  6. FOLIC ACID. [Concomitant]
     Active Substance: FOLIC ACID
  7. FOCUS [Concomitant]
     Indication: EYE DISORDER
     Route: 005
  8. NORVASC [Concomitant]
     Active Substance: AMLODIPINE BESYLATE
  9. CHLORTALIDONE [Concomitant]
     Active Substance: CHLORTHALIDONE
  10. BETACAROTENE [Concomitant]
     Active Substance: .BETA.-CAROTENE
     Dosage: DAILY
  11. LISINOPRIL. [Suspect]
     Active Substance: LISINOPRIL
     Route: 048
  12. DOXAZOSIN [Concomitant]
     Active Substance: DOXAZOSIN\DOXAZOSIN MESYLATE
  13. SIMVASTATIN. [Concomitant]
     Active Substance: SIMVASTATIN
  14. CHEWABLE ASPIRIN [Concomitant]
     Active Substance: ASPIRIN

REACTIONS (1)
  - Stent placement [Unknown]

NARRATIVE: CASE EVENT DATE: 20171104
